FAERS Safety Report 9057403 (Version 2)
Quarter: 2013Q1

REPORT INFORMATION
  Report Type: Spontaneous
  Country: US (occurrence: US)
  Receive Date: 20130204
  Receipt Date: 20130305
  Transmission Date: 20140127
  Serious: Yes (Disabling)
  Sender: FDA-Public Use
  Company Number: US-GILEAD-2013-0068905

PATIENT
  Sex: Male

DRUGS (9)
  1. VIREAD [Suspect]
     Indication: HIV INFECTION
     Dosage: UNK
     Dates: start: 2003
  2. EMTRIVA [Suspect]
     Indication: HIV INFECTION
     Dosage: UNK
     Dates: start: 2003
  3. REYATAZ [Concomitant]
  4. BACTRIM [Concomitant]
  5. CLARITHROMYCIN [Concomitant]
  6. ETHAMBUTOL [Concomitant]
  7. LEVAQUIN [Concomitant]
  8. RIFABUTIN [Concomitant]
  9. VITAMIN B6 [Concomitant]

REACTIONS (2)
  - Bone pain [Recovered/Resolved]
  - Gait disturbance [Recovered/Resolved]
